FAERS Safety Report 7996841 (Version 2)
Quarter: 2012Q4

REPORT INFORMATION
  Report Type: 
  Country: CA (occurrence: CA)
  Receive Date: 20110617
  Receipt Date: 20121109
  Transmission Date: 20130627
  Serious: Yes (Disabling, Other)
  Sender: FDA-Public Use
  Company Number: PHHO2005CA11017

PATIENT
  Sex: Female

DRUGS (17)
  1. SANDOSTATIN LAR [Suspect]
     Indication: CARCINOID TUMOUR
     Dosage: 30mg , every 4 weeks
     Route: 030
     Dates: start: 20050222
  2. SANDOSTATIN LAR [Suspect]
     Dosage: 30 mg, every 3 weeks
     Route: 030
     Dates: start: 20050222
  3. OPIOIDS [Suspect]
  4. APO-AMITRIPTYLINE [Concomitant]
  5. LOSEC [Concomitant]
  6. OXYCOCET [Concomitant]
  7. SYNTHROID [Concomitant]
  8. VENTOLIN [Concomitant]
  9. OXYCONTIN [Concomitant]
  10. GABAPENTIN [Concomitant]
  11. PARIET [Concomitant]
  12. PREVACID [Concomitant]
  13. MORPHINE [Concomitant]
  14. FLORENT [Concomitant]
  15. MAXALT [Concomitant]
  16. CLORAZEPATE [Concomitant]
  17. GLYBURIDE [Concomitant]
     Indication: BLOOD GLUCOSE ABNORMAL

REACTIONS (38)
  - Type 1 diabetes mellitus [Unknown]
  - Blood glucose abnormal [Unknown]
  - Hyperhidrosis [Unknown]
  - Sensory loss [Unknown]
  - Hyperglycaemia [Unknown]
  - Hypertension [Unknown]
  - Pain in extremity [Unknown]
  - Oedema peripheral [Recovering/Resolving]
  - Adrenal disorder [Recovering/Resolving]
  - Blood cortisol decreased [Recovering/Resolving]
  - Weight increased [Unknown]
  - Musculoskeletal disorder [Unknown]
  - Depression [Unknown]
  - Balance disorder [Unknown]
  - Fall [Unknown]
  - Insomnia [Unknown]
  - Anxiety [Unknown]
  - Memory impairment [Unknown]
  - Migraine [Unknown]
  - Stress [Unknown]
  - Injection site haemorrhage [Unknown]
  - Drug intolerance [Unknown]
  - Asthenia [Not Recovered/Not Resolved]
  - Flushing [Recovering/Resolving]
  - Tachycardia [Unknown]
  - Fatigue [Not Recovered/Not Resolved]
  - Injection site reaction [Unknown]
  - Wheezing [Unknown]
  - Oropharyngeal pain [Unknown]
  - Dental caries [Unknown]
  - Tooth discolouration [Unknown]
  - Food craving [Unknown]
  - Tooth disorder [Unknown]
  - Vomiting [Unknown]
  - Food allergy [Unknown]
  - Abdominal distension [Unknown]
  - Nausea [Unknown]
  - Diarrhoea [Unknown]
